FAERS Safety Report 4456519-0 (Version None)
Quarter: 2004Q3

REPORT INFORMATION
  Report Type: 
  Country: None (occurrence: None)
  Receive Date: 20040923
  Receipt Date: 20040914
  Transmission Date: 20050211
  Serious: Yes (Hospitalization)
  Sender: FDA-Public Use
  Company Number: US-JNJFOC-20040803727

PATIENT
  Sex: Female
  Weight: 74.39 kg

DRUGS (8)
  1. REMICADE [Suspect]
     Indication: CROHN'S DISEASE
     Dosage: EVERY 6-8 WEEKS.
     Route: 042
  2. PENTASA [Concomitant]
  3. LOMOTIL [Concomitant]
  4. LOMOTIL [Concomitant]
  5. EFFEXOR [Concomitant]
  6. PROTONIX [Concomitant]
     Route: 049
  7. BEXTRA [Concomitant]
  8. ESTRADIOL [Concomitant]

REACTIONS (7)
  - ABDOMINAL PAIN LOWER [None]
  - ABDOMINAL PAIN UPPER [None]
  - DEHYDRATION [None]
  - DIARRHOEA [None]
  - FATIGUE [None]
  - OEDEMA PERIPHERAL [None]
  - VOMITING [None]
